FAERS Safety Report 10672426 (Version 2)
Quarter: 2015Q1

REPORT INFORMATION
  Report Type: Spontaneous
  Country: SD (occurrence: US)
  Receive Date: 20141223
  Receipt Date: 20150224
  Transmission Date: 20150720
  Serious: No
  Sender: FDA-Public Use
  Company Number: SD-009507513-1412USA004191

PATIENT
  Age: 45 Year
  Sex: Male

DRUGS (2)
  1. SULFAMETHOXAZOLE (+) TRIMETHOPRIM [Concomitant]
     Active Substance: SULFAMETHOXAZOLE\TRIMETHOPRIM
     Indication: GROIN INFECTION
     Dosage: UNK
     Dates: start: 2008
  2. POSACONAZOLE [Suspect]
     Active Substance: POSACONAZOLE
     Indication: TINEA PEDIS
     Dosage: 400 MG, BID
     Route: 048
     Dates: start: 2008, end: 2008

REACTIONS (2)
  - Drug intolerance [Unknown]
  - Gastrointestinal disorder [Unknown]

NARRATIVE: CASE EVENT DATE: 2008
